FAERS Safety Report 9521796 (Version 1)
Quarter: 2013Q3

REPORT INFORMATION
  Report Type: Other
  Country: AU (occurrence: AU)
  Receive Date: 20130913
  Receipt Date: 20130913
  Transmission Date: 20140515
  Serious: No
  Sender: FDA-Public Use
  Company Number: PHHY2013AU100942

PATIENT
  Sex: Male

DRUGS (3)
  1. GLIVEC [Suspect]
     Dosage: UNK UKN, UNK
  2. TAMOXIFEN [Suspect]
     Indication: DESMOID TUMOUR
     Dosage: UNK UKN, UNK
  3. SULINDAC [Suspect]
     Indication: DESMOID TUMOUR
     Dosage: UNK UKN, UNK

REACTIONS (1)
  - No adverse event [Unknown]
